FAERS Safety Report 12723661 (Version 7)
Quarter: 2018Q4

REPORT INFORMATION
  Report Type: Spontaneous
  Country: CA (occurrence: CA)
  Receive Date: 20160908
  Receipt Date: 20181026
  Transmission Date: 20190204
  Serious: Yes (Other)
  Sender: FDA-Public Use
  Company Number: CA-ORION CORPORATION ORION PHARMA-TREX2015-0729

PATIENT
  Sex: Male

DRUGS (18)
  1. PREDNISONE. [Suspect]
     Active Substance: PREDNISONE
     Indication: RHEUMATOID ARTHRITIS
     Route: 065
  2. ADVIL [Concomitant]
     Active Substance: IBUPROFEN
     Route: 065
  3. METHOTREXATE (TRADE NAME UNKNOWN) [Suspect]
     Active Substance: METHOTREXATE
     Indication: RHEUMATOID ARTHRITIS
     Route: 048
     Dates: start: 20150220
  4. XELJANZ [Suspect]
     Active Substance: TOFACITINIB CITRATE
     Indication: RHEUMATOID ARTHRITIS
     Route: 048
     Dates: start: 20150716, end: 201512
  5. XELJANZ [Suspect]
     Active Substance: TOFACITINIB CITRATE
     Route: 048
     Dates: end: 201604
  6. XELJANZ [Suspect]
     Active Substance: TOFACITINIB CITRATE
     Route: 048
     Dates: start: 201604, end: 20160803
  7. XELJANZ [Suspect]
     Active Substance: TOFACITINIB CITRATE
     Route: 048
     Dates: start: 20160913
  8. CELEBREX [Suspect]
     Active Substance: CELECOXIB
     Route: 048
  9. CELEBREX [Suspect]
     Active Substance: CELECOXIB
     Route: 048
     Dates: end: 20151215
  10. XELJANZ [Suspect]
     Active Substance: TOFACITINIB CITRATE
     Route: 048
     Dates: start: 20160806, end: 20160808
  11. CELEBREX [Suspect]
     Active Substance: CELECOXIB
     Route: 048
     Dates: start: 2016, end: 20160327
  12. CELEBREX [Suspect]
     Active Substance: CELECOXIB
     Indication: PAIN
     Route: 048
  13. CELEBREX [Suspect]
     Active Substance: CELECOXIB
     Route: 048
     Dates: start: 20151215
  14. PREDNISONE. [Suspect]
     Active Substance: PREDNISONE
     Route: 065
     Dates: end: 20150904
  15. CELEBREX [Suspect]
     Active Substance: CELECOXIB
     Indication: RHEUMATOID ARTHRITIS
     Route: 048
  16. CELEBREX [Suspect]
     Active Substance: CELECOXIB
     Route: 048
     Dates: start: 20160223, end: 2016
  17. CELEBREX [Suspect]
     Active Substance: CELECOXIB
     Route: 048
     Dates: start: 20160328
  18. PLAQUENIL [Suspect]
     Active Substance: HYDROXYCHLOROQUINE SULFATE
     Indication: RHEUMATOID ARTHRITIS
     Route: 065
     Dates: start: 20150220, end: 20151016

REACTIONS (20)
  - Poor quality sleep [Unknown]
  - Depressed mood [Recovered/Resolved]
  - Drug ineffective [Unknown]
  - Constipation [Recovering/Resolving]
  - Viral upper respiratory tract infection [Not Recovered/Not Resolved]
  - Synovitis [Unknown]
  - Weight bearing difficulty [Unknown]
  - Stress [Not Recovered/Not Resolved]
  - Product dose omission [Unknown]
  - Fatigue [Recovered/Resolved]
  - Sensitivity to weather change [Not Recovered/Not Resolved]
  - Abdominal pain upper [Recovering/Resolving]
  - Wrist fracture [Recovering/Resolving]
  - Irritability [Not Recovered/Not Resolved]
  - Decreased activity [Not Recovered/Not Resolved]
  - Nasopharyngitis [Not Recovered/Not Resolved]
  - Rheumatoid arthritis [Recovered/Resolved]
  - Fall [Recovering/Resolving]
  - Wound infection [Recovering/Resolving]
  - Gait disturbance [Unknown]

NARRATIVE: CASE EVENT DATE: 2015
